FAERS Safety Report 15436748 (Version 2)
Quarter: 2018Q4

REPORT INFORMATION
  Report Type: Spontaneous
  Country: US (occurrence: US)
  Receive Date: 20180927
  Receipt Date: 20181115
  Transmission Date: 20190204
  Serious: No
  Sender: FDA-Public Use
  Company Number: PHHY2018US108233

PATIENT
  Age: 82 Year
  Sex: Female

DRUGS (1)
  1. SYSTANE GELDROPS [Suspect]
     Active Substance: POLYETHYLENE GLYCOL 400\PROPYLENE GLYCOL
     Indication: DRY EYE
     Route: 047

REACTIONS (5)
  - Abnormal sensation in eye [Unknown]
  - Dry eye [Unknown]
  - Lacrimation decreased [Unknown]
  - Drug ineffective [Unknown]
  - Eye movement disorder [Unknown]
